FAERS Safety Report 5012248-6 (Version None)
Quarter: 2006Q2

REPORT INFORMATION
  Report Type: 
  Country: None (occurrence: None)
  Receive Date: 20060410
  Receipt Date: 20060309
  Transmission Date: 20061013
  Serious: Yes (Hospitalization)
  Sender: FDA-Public Use
  Company Number: 06P-163-0327414-00

PATIENT
  Age: 60 Year
  Sex: Male

DRUGS (2)
  1. DEPAKOTE [Suspect]
     Indication: AGITATION
     Dosage: 750 MG - 1000 MG DAILY, PER ORAL
     Route: 048
  2. PHENOBARBITAL TAB [Concomitant]

REACTIONS (7)
  - AGGRESSION [None]
  - AGITATION [None]
  - AMINO ACID METABOLISM DISORDER [None]
  - AMMONIA INCREASED [None]
  - CONFUSIONAL STATE [None]
  - DEPRESSED LEVEL OF CONSCIOUSNESS [None]
  - MOOD SWINGS [None]
